FAERS Safety Report 13080698 (Version 1)
Quarter: 2017Q1

REPORT INFORMATION
  Report Type: Report from Study
  Country: GB (occurrence: GB)
  Receive Date: 20170103
  Receipt Date: 20170103
  Transmission Date: 20170428
  Serious: Yes (Hospitalization)
  Sender: FDA-Public Use
  Company Number: PHHO2016GB019194

PATIENT
  Sex: Female
  Weight: 67.6 kg

DRUGS (16)
  1. CYCLOSPORINE A [Suspect]
     Active Substance: CYCLOSPORINE
     Indication: APLASTIC ANAEMIA
     Dosage: 175 MG, BID
     Route: 048
     Dates: start: 20161208
  2. NORETHISTERONE [Concomitant]
     Active Substance: NORETHINDRONE
     Indication: PROPHYLAXIS
     Dosage: 5 MG, TID
     Route: 048
  3. POLYFUSOR PHOSPHAT [Concomitant]
     Indication: HYPOPHOSPHATAEMIA
     Dosage: 500 MG, UNK
     Route: 042
     Dates: start: 20161203, end: 20161212
  4. ADCAL [Concomitant]
     Active Substance: CALCIUM CARBONATE
     Indication: HYPOCALCAEMIA
     Dosage: 2 DF, QD, 2 TABLETS
     Route: 048
     Dates: start: 20161207, end: 20161211
  5. TRANEXAMIC ACID. [Concomitant]
     Active Substance: TRANEXAMIC ACID
     Indication: HAEMORRHAGE
     Dosage: 1 G, PRN, EVERY 6 HOURS
  6. CHLORHEXIDINE GLUCONATE. [Concomitant]
     Active Substance: CHLORHEXIDINE GLUCONATE
     Indication: DENTAL DISORDER PROPHYLAXIS
     Dosage: 0.2 %, QID
     Route: 048
     Dates: start: 20161207
  7. ANTITHYMOCYTE IMMUNOGLOBULIN [Suspect]
     Active Substance: THYMOCYTE IMMUNE GLOBULIN NOS
     Indication: APLASTIC ANAEMIA
     Dosage: 2680 MG, QD, FOR FOUR DAYS
     Route: 042
     Dates: start: 20161208, end: 20161211
  8. MAGNESIUM GLYCEROPHOSPHATE [Concomitant]
     Active Substance: MAGNESIUM GLYCEROPHOSPHATE
     Indication: HYPOMAGNESAEMIA
     Dosage: 8 MMOL, BID
     Route: 048
     Dates: start: 20161211, end: 20161214
  9. PREDNISOLON [Concomitant]
     Active Substance: PREDNISOLONE
     Indication: PROPHYLAXIS
     Dosage: 35 MG, QD
     Route: 048
     Dates: start: 20161212
  10. OMEPRAZOLE. [Concomitant]
     Active Substance: OMEPRAZOLE
     Indication: PROPHYLAXIS
     Dosage: 20 MG, QD
     Route: 048
     Dates: start: 20161208
  11. PARACITAMOL [Concomitant]
     Indication: ANALGESIC THERAPY
     Dosage: 1000 MG, PRN, EVERY 4-6 HOURS
     Route: 048
     Dates: start: 20161204
  12. ACICLOVIR [Concomitant]
     Active Substance: ACYCLOVIR
     Indication: ANTIVIRAL PROPHYLAXIS
     Dosage: 400 MG, BID
     Route: 048
     Dates: start: 20161207
  13. NYSTATIN. [Concomitant]
     Active Substance: NYSTATIN
     Indication: DENTAL DISORDER PROPHYLAXIS
     Dosage: 100 U/ML, QID
     Route: 048
     Dates: start: 20161212
  14. TAZOCIN [Concomitant]
     Active Substance: PIPERACILLIN SODIUM\TAZOBACTAM SODIUM
     Indication: FEBRILE NEUTROPENIA
     Dosage: 4.5 MG, TID
     Route: 042
     Dates: start: 20161204, end: 20161210
  15. POSACONAZOLE [Concomitant]
     Active Substance: POSACONAZOLE
     Indication: ANTIFUNGAL PROPHYLAXIS
     Dosage: 300 MG, QD
     Route: 048
     Dates: start: 20161204, end: 20161215
  16. CIPROFLOXACIN. [Concomitant]
     Active Substance: CIPROFLOXACIN
     Indication: ANTIBIOTIC PROPHYLAXIS
     Dosage: 250 MG, BID
     Route: 048
     Dates: start: 20161212

REACTIONS (1)
  - Hepatobiliary disease [Recovered/Resolved]
